FAERS Safety Report 11160257 (Version 1)
Quarter: 2015Q2

REPORT INFORMATION
  Report Type: Spontaneous
  Country: US (occurrence: US)
  Receive Date: 20150603
  Receipt Date: 20150603
  Transmission Date: 20150821
  Serious: Yes (Hospitalization, Other)
  Sender: FDA-Public Use
  Company Number: US-BRISTOL-MYERS SQUIBB COMPANY-BMS-2015-035025

PATIENT
  Age: 61 Year
  Sex: Male

DRUGS (5)
  1. METRONIDAZOLE. [Concomitant]
     Active Substance: METRONIDAZOLE
     Indication: PNEUMONIA ASPIRATION
     Route: 065
  2. LINEZOLID. [Concomitant]
     Active Substance: LINEZOLID
     Indication: SEPSIS
     Route: 065
  3. VANCOMYCIN [Concomitant]
     Active Substance: VANCOMYCIN
     Indication: PNEUMONIA ASPIRATION
     Route: 065
  4. AZTREONAM. [Suspect]
     Active Substance: AZTREONAM
     Indication: PNEUMONIA ASPIRATION
     Route: 065
  5. AZTREONAM. [Suspect]
     Active Substance: AZTREONAM
     Indication: SEPSIS

REACTIONS (1)
  - Thrombocytopenia [Recovered/Resolved]
